FAERS Safety Report 16938948 (Version 3)
Quarter: 2020Q3

REPORT INFORMATION
  Report Type: Report from Study
  Country: BR (occurrence: BR)
  Receive Date: 20191020
  Receipt Date: 20200615
  Transmission Date: 20201104
  Serious: Yes (Life-Threatening, Hospitalization, Other)
  Sender: FDA-Public Use
  Company Number: PHHY2019BR090736

PATIENT
  Sex: Male
  Weight: 75 kg

DRUGS (8)
  1. MIFLASONA [Concomitant]
     Active Substance: BECLOMETHASONE DIPROPIONATE
     Indication: BRONCHITIS
     Dosage: 2 DF, Q12H
     Route: 065
  2. MIFLASONA [Concomitant]
     Active Substance: BECLOMETHASONE DIPROPIONATE
     Indication: ASTHMA
     Dosage: 1 DF, BID
     Route: 055
  3. MONTELUKAST SODIUM. [Suspect]
     Active Substance: MONTELUKAST SODIUM
     Indication: PRODUCT USED FOR UNKNOWN INDICATION
     Dosage: UNK
     Route: 065
  4. HYDROCHLOROTHIAZIDE. [Concomitant]
     Active Substance: HYDROCHLOROTHIAZIDE
     Indication: HYPERTENSION
     Dosage: 1 DF, QD
     Route: 048
  5. XOLAIR [Suspect]
     Active Substance: OMALIZUMAB
     Dosage: 150 MG, QMO
     Route: 065
     Dates: start: 201902
  6. LOSARTAN. [Concomitant]
     Active Substance: LOSARTAN
     Indication: HYPERTENSION
     Dosage: 1 DF, QD
     Route: 065
  7. DUOVENT [Concomitant]
     Active Substance: FENOTEROL HYDROBROMIDE
     Indication: ASTHMA
     Dosage: 1 DF, QD
     Route: 055
  8. XOLAIR [Suspect]
     Active Substance: OMALIZUMAB
     Indication: ASTHMA
     Dosage: 150 MG, (4 AMPOULES) QMO
     Route: 065
     Dates: start: 20181002, end: 201901

REACTIONS (17)
  - Pain in extremity [Recovered/Resolved]
  - Memory impairment [Unknown]
  - Neck pain [Recovering/Resolving]
  - Bronchial disorder [Recovering/Resolving]
  - Throat clearing [Recovering/Resolving]
  - Staphylococcal infection [Recovered/Resolved]
  - Pyrexia [Unknown]
  - Staphylococcal osteomyelitis [Recovered/Resolved]
  - Insomnia [Unknown]
  - Dyspnoea [Not Recovered/Not Resolved]
  - Obstruction [Not Recovered/Not Resolved]
  - Cough [Recovering/Resolving]
  - Productive cough [Not Recovered/Not Resolved]
  - Wheezing [Not Recovered/Not Resolved]
  - Respiration abnormal [Not Recovered/Not Resolved]
  - Asthma [Recovering/Resolving]
  - Contrast media allergy [Unknown]

NARRATIVE: CASE EVENT DATE: 2018
